FAERS Safety Report 21202129 (Version 1)
Quarter: 2022Q3

REPORT INFORMATION
  Report Type: Spontaneous
  Country: US (occurrence: US)
  Receive Date: 20220811
  Receipt Date: 20220811
  Transmission Date: 20221027
  Serious: Yes (Other)
  Sender: FDA-Public Use
  Company Number: US-ANIPHARMA-2022-US-011530

PATIENT
  Age: 61 Year
  Sex: Male

DRUGS (9)
  1. CORTICOTROPIN [Suspect]
     Active Substance: CORTICOTROPIN
     Indication: Multiple sclerosis
     Dosage: INJECT 100 UNITS SUBCUTANEOUSLY ONCE DAILY FOR 7 DAYS
     Route: 058
  2. FOSAMAX [Suspect]
     Active Substance: ALENDRONATE SODIUM
     Route: 065
     Dates: start: 20220504
  3. FINASTERIDE [Concomitant]
     Active Substance: FINASTERIDE
     Route: 065
  4. MYRBETRIQ [Concomitant]
     Active Substance: MIRABEGRON
     Route: 065
  5. 4-AMINOBUTYRIC ACID [Concomitant]
     Route: 065
  6. DONEPEZIL HYDROCHLORIDE [Concomitant]
     Active Substance: DONEPEZIL HYDROCHLORIDE
     Route: 065
  7. GABAPENTIN [Concomitant]
     Active Substance: GABAPENTIN
     Route: 065
  8. RITALIN [Concomitant]
     Active Substance: METHYLPHENIDATE HYDROCHLORIDE
     Route: 065
  9. BUPROPION [Concomitant]
     Active Substance: BUPROPION
     Route: 065

REACTIONS (4)
  - Pain [Unknown]
  - Osteoporosis [Unknown]
  - Pathological fracture [Unknown]
  - Contraindicated product administered [Unknown]

NARRATIVE: CASE EVENT DATE: 20220504
